FAERS Safety Report 18674724 (Version 1)
Quarter: 2020Q4

REPORT INFORMATION
  Report Type: Spontaneous
  Country: US (occurrence: US)
  Receive Date: 20201228
  Receipt Date: 20201228
  Transmission Date: 20210114
  Serious: Yes (Death)
  Sender: FDA-Public Use
  Company Number: US-JNJFOC-20201248226

PATIENT
  Age: 64 Year
  Sex: Female

DRUGS (2)
  1. HYDROCODONE;PARACETAMOL [Suspect]
     Active Substance: ACETAMINOPHEN\HYDROCODONE
     Indication: SUICIDE ATTEMPT
     Route: 048
  2. ACETAMINOPHEN AND CODEINE [Suspect]
     Active Substance: ACETAMINOPHEN\CODEINE PHOSPHATE
     Indication: SUICIDE ATTEMPT
     Route: 048

REACTIONS (1)
  - Toxicity to various agents [Fatal]
